FAERS Safety Report 10314640 (Version 2)
Quarter: 2014Q3

REPORT INFORMATION
  Report Type: Spontaneous
  Country: US (occurrence: None)
  Receive Date: 20140717
  Receipt Date: 20140728
  Transmission Date: 20150326
  Serious: Yes (Hospitalization)
  Sender: FDA-Public Use
  Company Number: UNT-2014-003691

PATIENT
  Age: 62 Year
  Sex: Female
  Weight: 96.1 kg

DRUGS (1)
  1. REMODULIN [Suspect]
     Active Substance: TREPROSTINIL
     Indication: PULMONARY ARTERIAL HYPERTENSION
     Route: 041
     Dates: start: 20091218

REACTIONS (4)
  - Acute respiratory failure [None]
  - Fluid retention [None]
  - Cardiac failure congestive [None]
  - Dyspnoea [None]

NARRATIVE: CASE EVENT DATE: 20140704
